FAERS Safety Report 4459956-3 (Version None)
Quarter: 2004Q3

REPORT INFORMATION
  Report Type: 
  Country: None (occurrence: None)
  Receive Date: 20040928
  Receipt Date: 20030915
  Transmission Date: 20050211
  Serious: No
  Sender: FDA-Public Use
  Company Number: US-GLAXOSMITHKLINE-A0425921A

PATIENT
  Age: 55 Year
  Sex: Female

DRUGS (4)
  1. SEREVENT [Suspect]
     Indication: ASTHMA
     Dosage: 60BLS TWICE PER DAY
     Route: 055
  2. FLOVENT [Concomitant]
  3. BECONASE [Concomitant]
  4. FLONASE [Concomitant]

REACTIONS (2)
  - ORAL CANDIDIASIS [None]
  - THROAT IRRITATION [None]
